FAERS Safety Report 16577432 (Version 3)
Quarter: 2020Q1

REPORT INFORMATION
  Report Type: Spontaneous
  Country: US (occurrence: US)
  Receive Date: 20190716
  Receipt Date: 20200115
  Transmission Date: 20200409
  Serious: Yes (Hospitalization)
  Sender: FDA-Public Use
  Company Number: US-PFIZER INC-2019059752

PATIENT
  Age: 71 Year
  Sex: Female

DRUGS (6)
  1. HYDROCORTISONE. [Suspect]
     Active Substance: HYDROCORTISONE
     Dosage: 25 MG, UNK
  2. HYDROCORTISONE. [Suspect]
     Active Substance: HYDROCORTISONE
     Dosage: 25 UG, UNK
  3. XELJANZ [Suspect]
     Active Substance: TOFACITINIB CITRATE
     Indication: COLITIS ULCERATIVE
     Dosage: 10 MG, 2X/DAY
     Route: 048
     Dates: start: 201903
  4. PREDNISONE. [Suspect]
     Active Substance: PREDNISONE
     Indication: COLITIS ULCERATIVE
     Dosage: UNK
     Route: 048
     Dates: end: 201902
  5. HYDROCORTISONE. [Suspect]
     Active Substance: HYDROCORTISONE
     Dosage: 100 MG, UNK
  6. HYDROCORTISONE. [Suspect]
     Active Substance: HYDROCORTISONE
     Dosage: 100 UG, UNK

REACTIONS (1)
  - Enteritis infectious [Recovered/Resolved]
